FAERS Safety Report 8494342-0 (Version None)
Quarter: 2012Q3

REPORT INFORMATION
  Report Type: 
  Country: None (occurrence: None)
  Receive Date: 20120709
  Receipt Date: 20120628
  Transmission Date: 20120928
  Serious: Yes (Other)
  Sender: FDA-Public Use
  Company Number: ES-US-EMD SERONO, INC.-7127968

PATIENT
  Sex: Male

DRUGS (1)
  1. REBIF [Suspect]
     Indication: MULTIPLE SCLEROSIS
     Route: 058
     Dates: end: 20120628

REACTIONS (3)
  - OPTIC NEURITIS [None]
  - SENSORY LOSS [None]
  - HAEMATOMA [None]
